FAERS Safety Report 8443466-2 (Version None)
Quarter: 2012Q2

REPORT INFORMATION
  Report Type: 
  Country: None (occurrence: None)
  Receive Date: 20120618
  Receipt Date: 20120609
  Transmission Date: 20120825
  Serious: Yes (Other)
  Sender: FDA-Public Use
  Company Number: US-BAYER-2012-057930

PATIENT
  Sex: Female

DRUGS (1)
  1. MIRENA [Suspect]
     Dosage: 20 MCG/24HR, UNK
     Route: 015

REACTIONS (8)
  - RHEUMATOID ARTHRITIS [None]
  - VITAMIN D DEFICIENCY [None]
  - LOSS OF LIBIDO [None]
  - NAUSEA [None]
  - ANXIETY [None]
  - AUTOIMMUNE THYROIDITIS [None]
  - PALPITATIONS [None]
  - WEIGHT INCREASED [None]
